FAERS Safety Report 6120096-9 (Version None)
Quarter: 2009Q1

REPORT INFORMATION
  Report Type: 
  Country: None (occurrence: None)
  Receive Date: 20090316
  Receipt Date: 20090309
  Transmission Date: 20090719
  Serious: Yes (Hospitalization)
  Sender: FDA-Public Use
  Company Number: JP-ABBOTT-09P-087-0561416-00

PATIENT
  Age: 72 Year
  Sex: Female

DRUGS (3)
  1. KLARICID [Suspect]
     Indication: MYCOBACTERIUM AVIUM COMPLEX IMMUNE RESTORATION DISEASE
     Dosage: 800MG DAILY
     Route: 048
     Dates: start: 20080101
  2. KLARICID [Suspect]
     Dosage: 400MG DAILY
     Route: 048
     Dates: end: 20080101
  3. METHOTREXATE [Suspect]
     Indication: MYCOBACTERIUM AVIUM COMPLEX IMMUNE RESTORATION DISEASE

REACTIONS (1)
  - PANCYTOPENIA [None]
